FAERS Safety Report 18835160 (Version 1)
Quarter: 2021Q1

REPORT INFORMATION
  Report Type: Spontaneous
  Country: US (occurrence: US)
  Receive Date: 20210203
  Receipt Date: 20210203
  Transmission Date: 20210419
  Serious: Yes (Disabling)
  Sender: FDA-Public Use
  Company Number: None

PATIENT
  Age: 28 Year
  Sex: Female
  Weight: 42.75 kg

DRUGS (28)
  1. CIPROFLOXACIN. [Suspect]
     Active Substance: CIPROFLOXACIN
     Indication: PNEUMONIA STAPHYLOCOCCAL
     Dosage: ?          QUANTITY:1 CAPSULE(S);?
     Route: 048
  2. CELLCEPT [Concomitant]
     Active Substance: MYCOPHENOLATE MOFETIL\MYCOPHENOLATE MOFETIL HYDROCHLORIDE
  3. SINGULAIR [Concomitant]
     Active Substance: MONTELUKAST SODIUM
  4. LEXAPRO [Concomitant]
     Active Substance: ESCITALOPRAM OXALATE
  5. WELLBUTRIN [Concomitant]
     Active Substance: BUPROPION HYDROCHLORIDE
  6. BIOTIN [Concomitant]
     Active Substance: BIOTIN
  7. WMF BIOTIN [Concomitant]
  8. CYPROHEPTADINE. [Concomitant]
     Active Substance: CYPROHEPTADINE
  9. TACROLIMUS. [Concomitant]
     Active Substance: TACROLIMUS
  10. AZYTHROMYCIN [Concomitant]
     Active Substance: AZITHROMYCIN ANHYDROUS
  11. DAPSONE. [Concomitant]
     Active Substance: DAPSONE
  12. IRON [Concomitant]
     Active Substance: IRON
  13. ARANESP [Concomitant]
     Active Substance: DARBEPOETIN ALFA
  14. CALCIUM ACETATE. [Concomitant]
     Active Substance: CALCIUM ACETATE
  15. MELATONIN [Concomitant]
     Active Substance: MELATONIN
  16. MIRTAZIAPINE [Concomitant]
  17. PROCHLORPERAZINE. [Concomitant]
     Active Substance: PROCHLORPERAZINE
  18. ACTIGALL [Concomitant]
     Active Substance: URSODIOL
  19. ALBUTEROL. [Concomitant]
     Active Substance: ALBUTEROL
  20. GABAPENTIN. [Concomitant]
     Active Substance: GABAPENTIN
  21. VITAMIN D3 [Concomitant]
     Active Substance: CHOLECALCIFEROL
  22. ABDEK SOFT GEL [Concomitant]
  23. MUPROCION [Concomitant]
  24. PREDNISONE. [Concomitant]
     Active Substance: PREDNISONE
  25. VERAMYST [Concomitant]
     Active Substance: FLUTICASONE FUROATE
  26. CALCITRIOL. [Concomitant]
     Active Substance: CALCITRIOL
  27. ZENPEP [Concomitant]
     Active Substance: PANCRELIPASE AMYLASE\PANCRELIPASE LIPASE\PANCRELIPASE PROTEASE
  28. MELATONIN [Concomitant]
     Active Substance: MELATONIN

REACTIONS (1)
  - Rotator cuff syndrome [None]

NARRATIVE: CASE EVENT DATE: 20210201
